FAERS Safety Report 16439687 (Version 1)
Quarter: 2019Q2

REPORT INFORMATION
  Report Type: Spontaneous
  Country: US (occurrence: US)
  Receive Date: 20190617
  Receipt Date: 20190617
  Transmission Date: 20190711
  Serious: No
  Sender: FDA-Public Use
  Company Number: US-MYLANLABS-2019M1052555

PATIENT
  Sex: Female
  Weight: 68 kg

DRUGS (1)
  1. PROCTOFOAM HC [Suspect]
     Active Substance: HYDROCORTISONE ACETATE\PRAMOXINE HYDROCHLORIDE
     Indication: HAEMORRHOIDS
     Dosage: 1 APPLICATION INTO RECTUM 2 TIMES A DAY AS NEEDED
     Route: 003

REACTIONS (2)
  - Underdose [Not Recovered/Not Resolved]
  - Treatment noncompliance [Unknown]
